FAERS Safety Report 18656170 (Version 5)
Quarter: 2021Q3

REPORT INFORMATION
  Report Type: Report from Study
  Country: CA (occurrence: CA)
  Receive Date: 20201223
  Receipt Date: 20210928
  Transmission Date: 20211014
  Serious: Yes (Hospitalization, Other)
  Sender: FDA-Public Use
  Company Number: CA-JNJFOC-20201241796

PATIENT
  Age: 36 Year
  Sex: Female
  Weight: 68 kg

DRUGS (1)
  1. REMICADE [Suspect]
     Active Substance: INFLIXIMAB
     Indication: NEUROSARCOIDOSIS
     Dosage: V1: 340 MG,?V2: 335MG?V3: 320 MG?V4:340 MG (DOSE 5MG/KG)
     Route: 042
     Dates: start: 20190613

REACTIONS (9)
  - Tibia fracture [Recovering/Resolving]
  - Arthralgia [Not Recovered/Not Resolved]
  - Osteomyelitis [Recovering/Resolving]
  - Myalgia [Unknown]
  - Wound [Recovered/Resolved]
  - Cellulitis [Recovering/Resolving]
  - Injury [Recovering/Resolving]
  - Fall [Unknown]
  - SARS-CoV-2 test positive [Recovering/Resolving]

NARRATIVE: CASE EVENT DATE: 20201211
